FAERS Safety Report 13034742 (Version 2)
Quarter: 2017Q1

REPORT INFORMATION
  Report Type: Spontaneous
  Country: JP (occurrence: JP)
  Receive Date: 20161216
  Receipt Date: 20170201
  Transmission Date: 20170428
  Serious: Yes (Hospitalization, Other)
  Sender: FDA-Public Use
  Company Number: JP-GLAXOSMITHKLINE-JP2016JPN183802

PATIENT
  Age: 90 Year
  Sex: Female

DRUGS (1)
  1. ACICLOVIR [Suspect]
     Active Substance: ACYCLOVIR
     Indication: HERPES ZOSTER
     Dosage: UNK
     Route: 048

REACTIONS (4)
  - Toxic encephalopathy [Unknown]
  - Abnormal behaviour [Unknown]
  - Renal impairment [Recovered/Resolved]
  - Altered state of consciousness [Recovering/Resolving]
